FAERS Safety Report 4787963-X (Version None)
Quarter: 2005Q3

REPORT INFORMATION
  Report Type: 
  Country: None (occurrence: None)
  Receive Date: 20050926
  Receipt Date: 20050324
  Transmission Date: 20060218
  Serious: Yes (Other)
  Sender: FDA-Public Use
  Company Number: US-JNJFOC-20050306505

PATIENT
  Age: 37 Year
  Sex: Female

DRUGS (6)
  1. ORTHO-NOVUM 7/7/7-28 [Suspect]
     Indication: CONTRACEPTION
     Dosage: 1 DOSE(S), 1 IN 1 DAY; ORAL
     Route: 048
     Dates: start: 20041201, end: 20050303
  2. TOPAMAX [Suspect]
     Indication: HEADACHE
     Dosage: 200 MG, IN 1 DAY; ORAL
     Route: 048
     Dates: start: 20040101
  3. TOPAMAX [Suspect]
     Indication: MIGRAINE PROPHYLAXIS
     Dosage: 200 MG, IN 1 DAY; ORAL
     Route: 048
     Dates: start: 20040101
  4. ZANAFLEX [Concomitant]
  5. VALTREX [Concomitant]
  6. MAXALT [Concomitant]

REACTIONS (2)
  - DRUG EXPOSURE DURING PREGNANCY [None]
  - PREGNANCY ON ORAL CONTRACEPTIVE [None]
